FAERS Safety Report 12242025 (Version 3)
Quarter: 2016Q2

REPORT INFORMATION
  Report Type: Spontaneous
  Country: US (occurrence: US)
  Receive Date: 20160406
  Receipt Date: 20160608
  Transmission Date: 20160815
  Serious: Yes (Other)
  Sender: FDA-Public Use
  Company Number: US-009507513-1603USA013140

PATIENT
  Sex: Female
  Weight: 64.85 kg

DRUGS (4)
  1. BIOTIN [Concomitant]
     Active Substance: BIOTIN
     Dosage: UNK
  2. LYSINE [Concomitant]
     Active Substance: LYSINE
     Dosage: UNK
  3. CRANBERRY. [Concomitant]
     Active Substance: CRANBERRY
     Dosage: UNK
  4. NEXPLANON [Suspect]
     Active Substance: ETONOGESTREL
     Indication: CONTRACEPTION
     Dosage: UNK
     Route: 059
     Dates: start: 20130501

REACTIONS (4)
  - Menstruation irregular [Recovered/Resolved]
  - Vaginal haemorrhage [Unknown]
  - Device dislocation [Not Recovered/Not Resolved]
  - Complication associated with device [Not Recovered/Not Resolved]

NARRATIVE: CASE EVENT DATE: 2014
